FAERS Safety Report 25591481 (Version 1)
Quarter: 2025Q3

REPORT INFORMATION
  Report Type: Spontaneous
  Country: EU (occurrence: EU)
  Receive Date: 20250722
  Receipt Date: 20250722
  Transmission Date: 20251021
  Serious: Yes (Hospitalization)
  Sender: AMGEN
  Company Number: EU-AMGEN-DEUSP2025140932

PATIENT

DRUGS (1)
  1. ADALIMUMAB [Suspect]
     Active Substance: ADALIMUMAB
     Indication: Colitis ulcerative
     Route: 065

REACTIONS (7)
  - Iridocyclitis [Unknown]
  - Cholangitis [Unknown]
  - Erythema nodosum [Unknown]
  - Pyoderma gangrenosum [Unknown]
  - Cholangitis sclerosing [Unknown]
  - Abscess [Unknown]
  - Therapeutic product effect incomplete [Unknown]
